FAERS Safety Report 8622535 (Version 2)
Quarter: 2014Q4

REPORT INFORMATION
  Report Type: Spontaneous
  Country: US (occurrence: US)
  Receive Date: 20120619
  Receipt Date: 20141030
  Transmission Date: 20150529
  Serious: Yes (Hospitalization, Other)
  Sender: FDA-Public Use
  Company Number: US-GLAXOSMITHKLINE-A0966811A

PATIENT
  Sex: Male

DRUGS (1)
  1. AVANDIA [Suspect]
     Active Substance: ROSIGLITAZONE MALEATE
     Indication: DIABETES MELLITUS
     Dosage: UNK UNK, UNK
     Route: 048
     Dates: start: 200206, end: 200909

REACTIONS (6)
  - Coronary artery bypass [Unknown]
  - Hypertension [Unknown]
  - Coronary artery disease [Unknown]
  - Penile prosthesis insertion [Unknown]
  - Bundle branch block right [Unknown]
  - Myocardial infarction [Not Recovered/Not Resolved]
